FAERS Safety Report 7698569 (Version 4)
Quarter: 2014Q1

REPORT INFORMATION
  Report Type: Spontaneous
  Country: US (occurrence: US)
  Receive Date: 20101208
  Receipt Date: 20140210
  Transmission Date: 20141002
  Serious: Yes (Other)
  Sender: FDA-Public Use
  Company Number: US-BAYER-2010-000423

PATIENT
  Age: 21 Year
  Sex: Female
  Weight: 103.86 kg

DRUGS (3)
  1. YASMIN [Suspect]
     Indication: PRODUCT USED FOR UNKNOWN INDICATION
  2. METOCLOPRAMIDE [Concomitant]
  3. HYDROCODONE [Concomitant]

REACTIONS (2)
  - Cholelithiasis [None]
  - Injury [None]
